FAERS Safety Report 4337920-2 (Version None)
Quarter: 2004Q1

REPORT INFORMATION
  Report Type: 
  Country: None (occurrence: None)
  Receive Date: 20040329
  Receipt Date: 20040204
  Transmission Date: 20041129
  Serious: Yes (Other)
  Sender: FDA-Public Use
  Company Number: USA040157906

PATIENT
  Age: 6 Year
  Sex: Male
  Weight: 55 kg

DRUGS (4)
  1. STRATTERA [Suspect]
     Dosage: 18 MG/DAY
     Dates: start: 20040131
  2. ZYPREXA [Suspect]
     Dosage: 15 MG/1 DAY
  3. IMIPRAMINE [Concomitant]
  4. CLONIDINE [Concomitant]

REACTIONS (17)
  - ABNORMAL BEHAVIOUR [None]
  - AGGRESSION [None]
  - ANGER [None]
  - ATTENTION DEFICIT/HYPERACTIVITY DISORDER [None]
  - CONSTIPATION [None]
  - DRUG INEFFECTIVE [None]
  - DRUG INTERACTION [None]
  - DYSPNOEA [None]
  - DYSURIA [None]
  - FIGHT IN SCHOOL [None]
  - HUNGER [None]
  - HYPERPHAGIA [None]
  - INSOMNIA [None]
  - INTENTIONAL SELF-INJURY [None]
  - IRRITABILITY [None]
  - OPPOSITIONAL DEFIANT DISORDER [None]
  - WEIGHT INCREASED [None]
